FAERS Safety Report 8616368 (Version 2)
Quarter: 2015Q3

REPORT INFORMATION
  Report Type: Report from Study
  Country: US (occurrence: US)
  Receive Date: 20120614
  Receipt Date: 20150902
  Transmission Date: 20151125
  Serious: Yes (Hospitalization, Other)
  Sender: FDA-Public Use
  Company Number: US-UCBSA-041435

PATIENT
  Age: 28 Year
  Sex: Female
  Weight: 73 kg

DRUGS (18)
  1. REMICADE INFUSIONS [Concomitant]
     Dosage: 5 MG/KG
     Route: 042
     Dates: start: 20110615
  2. REMICADE INFUSIONS [Concomitant]
     Indication: CROHN^S DISEASE
     Dosage: 5MG/KG
     Route: 042
     Dates: start: 20110601, end: 201202
  3. PREDNISONE. [Concomitant]
     Active Substance: PREDNISONE
     Indication: CROHN^S DISEASE
     Dates: start: 201002, end: 201004
  4. CLONAZEPAM. [Concomitant]
     Active Substance: CLONAZEPAM
     Indication: ANXIETY
     Dosage: 1 MG AT BEDTIME
     Route: 048
  5. CLONIDINE EPID [Concomitant]
     Indication: BLOOD PRESSURE MEASUREMENT
     Route: 008
     Dates: start: 20100312
  6. CERTOLIZUMAB PEGOL CD [Suspect]
     Active Substance: CERTOLIZUMAB PEGOL
     Indication: CROHN^S DISEASE
     Dosage: 400 MG, UNK
     Route: 058
     Dates: start: 20100303, end: 20100303
  7. PROZAC [Concomitant]
     Active Substance: FLUOXETINE HYDROCHLORIDE
     Indication: DEPRESSION
     Dosage: DAILY DOSE: 40 MG
     Route: 048
  8. HYDROCODONE BITARTRATE AND ACETAMINOPHEN [Concomitant]
     Active Substance: ACETAMINOPHEN\HYDROCODONE BITARTRATE
     Dosage: 10-500 MG 1-2 TABLET
  9. PREDNISONE. [Concomitant]
     Active Substance: PREDNISONE
     Dosage: DAILY DOSE: 30 MG
     Dates: start: 20111123, end: 201202
  10. PROZAC [Concomitant]
     Active Substance: FLUOXETINE HYDROCHLORIDE
     Dosage: DAILY DOSE: 60 MG
     Route: 048
  11. ACETAMINOPHEN. [Concomitant]
     Active Substance: ACETAMINOPHEN
  12. ABILIFY [Concomitant]
     Active Substance: ARIPIPRAZOLE
     Indication: DEPRESSION
     Dosage: DAILY DOSE: 2 MG
     Route: 048
     Dates: start: 20101111
  13. PREDNISONE. [Concomitant]
     Active Substance: PREDNISONE
     Dates: start: 2011, end: 201204
  14. OXYCODONE [Concomitant]
     Active Substance: OXYCODONE
     Dosage: 5 MG-325 MG ONCE EVERY 4 HOURS
     Route: 048
     Dates: start: 201007
  15. TYLENOL EXTRA STRENGTH [Concomitant]
     Active Substance: ACETAMINOPHEN
     Indication: PAIN
     Dosage: 1-2 AS NEEDED, 1 G PRN
     Route: 048
  16. DIATRIZOATE MEGLUMINE [Concomitant]
     Active Substance: DIATRIZOATE MEGLUMINE
  17. PRENATAL VITAMINS [Concomitant]
     Active Substance: VITAMINS
     Indication: SUPPLEMENTATION THERAPY
     Dosage: 1 PO DAILY
     Route: 048
  18. ACETAMINOPHEN. [Concomitant]
     Active Substance: ACETAMINOPHEN
     Dosage: 1000 MG
     Dates: start: 20100312, end: 20100319

REACTIONS (4)
  - Vaginal haemorrhage [Recovered/Resolved]
  - Pregnancy [Unknown]
  - Abdominal pain [Recovered/Resolved]
  - Premature delivery [Unknown]

NARRATIVE: CASE EVENT DATE: 20110728
